FAERS Safety Report 13264351 (Version 1)
Quarter: 2017Q1

REPORT INFORMATION
  Report Type: Spontaneous
  Country: US (occurrence: US)
  Receive Date: 20170223
  Receipt Date: 20170223
  Transmission Date: 20170428
  Serious: Yes (Other)
  Sender: FDA-Public Use
  Company Number: US-PFIZER INC-2017072010

PATIENT
  Age: 53 Year
  Sex: Male
  Weight: 79.82 kg

DRUGS (1)
  1. EPIPEN [Suspect]
     Active Substance: EPINEPHRINE
     Dosage: 0.3 MG, ONCE
     Route: 030
     Dates: start: 20170207, end: 20170207

REACTIONS (4)
  - Accidental exposure to product [Recovered/Resolved]
  - Product quality issue [Unknown]
  - Injection site pain [Recovering/Resolving]
  - Needle issue [Unknown]

NARRATIVE: CASE EVENT DATE: 20170207
